FAERS Safety Report 10415877 (Version 1)
Quarter: 2014Q2

REPORT INFORMATION
  Report Type: Spontaneous
  Country: US (occurrence: None)
  Receive Date: 20140604
  Receipt Date: 20140604
  Transmission Date: 20141212
  Serious: No
  Sender: FDA-Public Use
  Company Number: 163-POMAL-14012857

PATIENT
  Age: 58 Year
  Sex: Male
  Weight: 58.06 kg

DRUGS (11)
  1. POMALYST (POMALIDOMIDE) (2 MILLIGRAM, CAPSULES) [Suspect]
     Indication: PLASMA CELL MYELOMA
     Dosage: 2 MG, 21 IN 28 D, PO
     Route: 048
     Dates: start: 20130905
  2. MORPHINE SULFATE [Concomitant]
  3. OXYCODONE HCL [Concomitant]
  4. ONDANSETRONHCL [Concomitant]
  5. LISINOPRIL-HYDROCHLOROTHIAZIDE (ZESTORETIC) [Concomitant]
  6. ANDROGEL (TESTOSTERONE) [Concomitant]
  7. LYRICA (PREGABALIN) [Concomitant]
  8. MELOXICAM [Concomitant]
  9. ENDOCET (OXYOCET) [Concomitant]
  10. LISINOPRIL [Concomitant]
  11. ACYCLOVIR (ACICLOVIR) (ACICLOVIR) [Concomitant]

REACTIONS (3)
  - Drug dose omission [None]
  - Fatigue [None]
  - Neuropathy peripheral [None]
